FAERS Safety Report 21701649 (Version 1)
Quarter: 2022Q4

REPORT INFORMATION
  Report Type: Spontaneous
  Country: DE (occurrence: DE)
  Receive Date: 20221208
  Receipt Date: 20221208
  Transmission Date: 20230113
  Serious: Yes (Hospitalization, Other)
  Sender: FDA-Public Use
  Company Number: DE-TEVA-2022-DE-2833134

PATIENT
  Age: 65 Year
  Sex: Female

DRUGS (7)
  1. TRIMIPRAMINE [Suspect]
     Active Substance: TRIMIPRAMINE
     Indication: Dystonia
     Route: 065
  2. MIRTAZAPINE [Suspect]
     Active Substance: MIRTAZAPINE
     Indication: Dystonia
     Route: 065
  3. OLANZAPINE [Suspect]
     Active Substance: OLANZAPINE
     Indication: Psychotic disorder
     Route: 065
  4. CLOZAPINE [Suspect]
     Active Substance: CLOZAPINE
     Indication: Dystonia
     Route: 065
  5. CITALOPRAM [Suspect]
     Active Substance: CITALOPRAM HYDROBROMIDE
     Indication: Dystonia
     Route: 065
  6. DOXEPIN [Suspect]
     Active Substance: DOXEPIN
     Indication: Dystonia
     Route: 065
  7. AMISULPRIDE [Suspect]
     Active Substance: AMISULPRIDE
     Indication: Psychotic disorder
     Route: 065

REACTIONS (6)
  - Dystonia [Recovered/Resolved]
  - Depression [Recovered/Resolved]
  - Cognitive disorder [Recovered/Resolved]
  - Affective disorder [Recovered/Resolved]
  - Quality of life decreased [Recovered/Resolved]
  - Therapy non-responder [Unknown]
